FAERS Safety Report 16701901 (Version 2)
Quarter: 2019Q3

REPORT INFORMATION
  Report Type: Spontaneous
  Country: PL (occurrence: PL)
  Receive Date: 20190814
  Receipt Date: 20190822
  Transmission Date: 20191004
  Serious: Yes (Death, Hospitalization, Other)
  Sender: FDA-Public Use
  Company Number: PL-AUROBINDO-AUR-APL-2019-053296

PATIENT

DRUGS (15)
  1. ISOPHANE INSULIN [Concomitant]
     Active Substance: INSULIN NOS
     Dosage: 18 IU (INTERNATIONAL UNIT) DAILY; 6 UNITS BEFORE THE MEALS IN THE MORNING, AT NOON AND IN THE EVENIN
     Route: 065
  2. PERINDOPRIL [Suspect]
     Active Substance: PERINDOPRIL
     Indication: HYPERTENSION
     Dosage: UNK
     Route: 065
  3. DEXAMETHASONE. [Suspect]
     Active Substance: DEXAMETHASONE
     Indication: WEIGHT DECREASED
  4. TORASEMIDE [Suspect]
     Active Substance: TORSEMIDE
     Indication: HYPERTENSION
     Dosage: UNK
     Route: 065
  5. TORASEMIDE [Suspect]
     Active Substance: TORSEMIDE
     Indication: CARDIAC FAILURE CHRONIC
  6. ISOPHANE INSULIN [Concomitant]
     Active Substance: INSULIN NOS
     Indication: PRODUCT USED FOR UNKNOWN INDICATION
     Dosage: 12 IU (INTERNATIONAL UNIT) DAILY; IN THE EVENING
     Route: 065
  7. DEXAMETHASONE. [Suspect]
     Active Substance: DEXAMETHASONE
     Indication: DIARRHOEA
     Dosage: 4 MILLIGRAM, ONCE A DAY
     Route: 065
  8. PERINDOPRIL [Suspect]
     Active Substance: PERINDOPRIL
     Indication: CARDIAC FAILURE CHRONIC
  9. PANCREATIN [Suspect]
     Active Substance: PANCRELIPASE
     Indication: PANCREATIC CARCINOMA
  10. PANCREATIN [Suspect]
     Active Substance: PANCRELIPASE
     Indication: ASTHENIA
     Dosage: 74000 INTERNATIONAL UNIT, ONCE A DAY
     Route: 065
  11. PANCREATIN [Suspect]
     Active Substance: PANCRELIPASE
     Indication: WEIGHT DECREASED
     Dosage: 150000 INTERNATIONAL UNIT, ONCE A DAY
     Route: 065
  12. PANCREATIN [Suspect]
     Active Substance: PANCRELIPASE
     Indication: DECREASED APPETITE
  13. DEXAMETHASONE. [Suspect]
     Active Substance: DEXAMETHASONE
     Indication: ASTHENIA
  14. DEXAMETHASONE. [Suspect]
     Active Substance: DEXAMETHASONE
     Indication: DECREASED APPETITE
  15. PANCREATIN [Suspect]
     Active Substance: PANCRELIPASE
     Indication: DIARRHOEA

REACTIONS (18)
  - Metastases to liver [Unknown]
  - Memory impairment [Unknown]
  - Urinary incontinence [Unknown]
  - Hyperglycaemia [Unknown]
  - Hypotension [Recovered/Resolved]
  - Dehydration [Unknown]
  - Visual acuity reduced [Unknown]
  - Asthenia [Fatal]
  - Weight decreased [Unknown]
  - Dizziness [Unknown]
  - Malignant neoplasm progression [Unknown]
  - Diarrhoea [Unknown]
  - Orthostatic hypotension [Unknown]
  - Glomerular filtration rate decreased [Unknown]
  - Hypotonia [Unknown]
  - Decreased appetite [Recovering/Resolving]
  - Diabetes mellitus [Recovered/Resolved]
  - Pancreatic carcinoma [Unknown]
